FAERS Safety Report 9057168 (Version 5)
Quarter: 2013Q3

REPORT INFORMATION
  Report Type: Spontaneous
  Country: JP (occurrence: JP)
  Receive Date: 20130131
  Receipt Date: 20130702
  Transmission Date: 20140515
  Serious: Yes (Other)
  Sender: FDA-Public Use
  Company Number: JP-PFIZER INC-2013026471

PATIENT
  Age: 64 Year
  Sex: Male

DRUGS (4)
  1. RHEUMATREX [Suspect]
     Indication: RHEUMATOID ARTHRITIS
     Dosage: 6 MG, WEEKLY
     Route: 048
     Dates: end: 20130121
  2. AZULFIDINE EN [Concomitant]
     Indication: RHEUMATOID ARTHRITIS
     Dosage: 500 MG, 2X/DAY
     Route: 048
     Dates: start: 20070312, end: 20130121
  3. PREDNISOLONE [Concomitant]
     Dosage: 5 MG, DAILY
     Route: 048
  4. VOLTAREN SR [Concomitant]
     Indication: INFLAMMATORY PAIN
     Dosage: 37.5 MG, 2X/DAY
     Route: 048
     Dates: start: 20070312, end: 20130128

REACTIONS (1)
  - Thrombocytopenia [Recovered/Resolved]
